FAERS Safety Report 8358539-2 (Version None)
Quarter: 2012Q2

REPORT INFORMATION
  Report Type: 
  Country: None (occurrence: None)
  Receive Date: 20120514
  Receipt Date: 20120507
  Transmission Date: 20120825
  Serious: No
  Sender: FDA-Public Use
  Company Number: US-PFIZER INC-2012063534

PATIENT
  Age: 60 Year
  Sex: Female
  Weight: 113 kg

DRUGS (3)
  1. ASPIRIN [Concomitant]
     Dosage: UNK
  2. ACETAMINOPHEN [Concomitant]
     Dosage: UNK
  3. IBUPROFEN (ADVIL) [Suspect]
     Indication: ARTHRITIS
     Dosage: UNK, AS NEEDED
     Route: 048

REACTIONS (1)
  - ORAL DISCOMFORT [None]
